FAERS Safety Report 21295326 (Version 1)
Quarter: 2022Q3

REPORT INFORMATION
  Report Type: Spontaneous
  Country: CH (occurrence: CH)
  Receive Date: 20220905
  Receipt Date: 20220905
  Transmission Date: 20221027
  Serious: Yes (Hospitalization, Other)
  Sender: FDA-Public Use
  Company Number: CH-ABBVIE-22K-151-4526562-00

PATIENT
  Age: 58 Year
  Sex: Female

DRUGS (10)
  1. SKYRIZI [Suspect]
     Active Substance: RISANKIZUMAB-RZAA
     Indication: Psoriatic arthropathy
     Route: 058
  2. BISOPROLOL [Concomitant]
     Active Substance: BISOPROLOL
     Indication: Product used for unknown indication
     Route: 048
     Dates: start: 20220720
  3. ASPIRIN [Concomitant]
     Active Substance: ASPIRIN
     Indication: Product used for unknown indication
     Route: 048
     Dates: start: 20220720
  4. CREON [Concomitant]
     Active Substance: PANCRELIPASE AMYLASE\PANCRELIPASE LIPASE\PANCRELIPASE PROTEASE
     Indication: Product used for unknown indication
     Route: 048
     Dates: start: 20220720
  5. PRIMPERAN [Concomitant]
     Active Substance: METOCLOPRAMIDE HYDROCHLORIDE
     Indication: Product used for unknown indication
     Route: 048
     Dates: start: 20220720
  6. PROTEINE [Concomitant]
     Indication: Product used for unknown indication
     Route: 048
     Dates: start: 20220720
  7. FRAGMIN [Concomitant]
     Active Substance: DALTEPARIN SODIUM
     Indication: Product used for unknown indication
     Dosage: 5000 IU/0.2 ML
     Route: 058
     Dates: start: 20220720
  8. NEOSTIGMINE [Concomitant]
     Active Substance: NEOSTIGMINE
     Indication: Product used for unknown indication
  9. ERYTHROMYCIN [Concomitant]
     Active Substance: ERYTHROMYCIN
     Indication: Product used for unknown indication
  10. MEROPENEMUM [Concomitant]
     Indication: Product used for unknown indication
     Dates: start: 20220706, end: 20220718

REACTIONS (16)
  - Intraductal papillary mucinous neoplasm [Unknown]
  - Bacteraemia [Unknown]
  - Supraventricular tachycardia [Unknown]
  - Osteoporosis [Unknown]
  - Panic attack [Unknown]
  - Stress [Unknown]
  - Alopecia [Unknown]
  - Vascular device infection [Unknown]
  - Anaemia [Unknown]
  - Thrombocytosis [Unknown]
  - Electrolyte imbalance [Unknown]
  - Liver disorder [Unknown]
  - Hypervolaemia [Unknown]
  - Malnutrition [Unknown]
  - Pneumonia [Unknown]
  - Pyrexia [Unknown]

NARRATIVE: CASE EVENT DATE: 20150601
